FAERS Safety Report 6344644-9 (Version None)
Quarter: 2009Q3

REPORT INFORMATION
  Report Type: 
  Country: None (occurrence: None)
  Receive Date: 20090903
  Receipt Date: 20090820
  Transmission Date: 20100115
  Serious: Yes (Hospitalization)
  Sender: FDA-Public Use
  Company Number: AUR-APU-2009-00475

PATIENT
  Age: 25 Year
  Sex: Female

DRUGS (5)
  1. LAMOTRIGINE [Suspect]
     Dosage: 25MG, DAILY
  2. AMOXICILLIN [Suspect]
     Indication: SINUSITIS
  3. PHENYTOIN [Concomitant]
  4. RABEPRAZOLE SODIUM [Concomitant]
  5. LEVONORGESTREL + ETHINYL ESTRADIOL [Concomitant]

REACTIONS (15)
  - ASPARTATE AMINOTRANSFERASE INCREASED [None]
  - C-REACTIVE PROTEIN INCREASED [None]
  - CARDIAC MURMUR [None]
  - CONJUNCTIVITIS [None]
  - DYSAESTHESIA [None]
  - GAMMA-GLUTAMYLTRANSFERASE INCREASED [None]
  - HYPERREFLEXIA [None]
  - LEUKOPENIA [None]
  - MENINGITIS ASEPTIC [None]
  - MENINGITIS VIRAL [None]
  - MYALGIA [None]
  - PERIORBITAL OEDEMA [None]
  - SJOGREN'S SYNDROME [None]
  - THROMBOCYTOPENIA [None]
  - VITH NERVE PARALYSIS [None]
